FAERS Safety Report 10402377 (Version 5)
Quarter: 2015Q3

REPORT INFORMATION
  Report Type: Spontaneous
  Country: BR (occurrence: BR)
  Receive Date: 20140822
  Receipt Date: 20150703
  Transmission Date: 20151125
  Serious: Yes (Hospitalization)
  Sender: FDA-Public Use
  Company Number: BR-PFIZER INC-2014231242

PATIENT
  Age: 55 Year
  Sex: Female
  Weight: 52.4 kg

DRUGS (7)
  1. SUTENT [Suspect]
     Active Substance: SUNITINIB MALATE
     Indication: METASTATIC RENAL CELL CARCINOMA
     Dosage: 50 MG, CYCLIC (CYCLE 4 PER 2 )
     Route: 048
     Dates: start: 20140529, end: 2014
  2. SUTENT [Suspect]
     Active Substance: SUNITINIB MALATE
     Dosage: 37.5 MG (3 TABLETS OF 12.5 MG) A DAY
     Route: 048
     Dates: start: 2014, end: 20140730
  3. SUTENT [Suspect]
     Active Substance: SUNITINIB MALATE
     Dosage: UNK
  4. SUTENT [Suspect]
     Active Substance: SUNITINIB MALATE
     Dosage: 37.5 MG (1 TABLET OF 25 MG PLUS 1 TABLET OF 12.5 MG), DAILY, CYCLE 2 PER 1
     Route: 048
     Dates: start: 2014, end: 2014
  5. SUTENT [Suspect]
     Active Substance: SUNITINIB MALATE
     Dosage: 37.5 MG (12.5 MG+ 25 MG), CYCLE 2 PER 1
     Route: 048
  6. SUTENT [Suspect]
     Active Substance: SUNITINIB MALATE
     Dosage: 37.5 MG, ALTERNATE DAY
     Route: 048
     Dates: end: 201501
  7. PANTOPRAZOLE [Concomitant]
     Active Substance: PANTOPRAZOLE SODIUM
     Dosage: UNK (STRENGTH 40 MG)

REACTIONS (16)
  - Eye irritation [Not Recovered/Not Resolved]
  - Diarrhoea [Unknown]
  - Blood pressure increased [Recovered/Resolved]
  - Confusional state [Unknown]
  - Abdominal discomfort [Recovered/Resolved]
  - Coordination abnormal [Unknown]
  - Lacrimation increased [Not Recovered/Not Resolved]
  - Decreased appetite [Not Recovered/Not Resolved]
  - Asthenia [Recovered/Resolved]
  - Ocular hyperaemia [Unknown]
  - Nausea [Unknown]
  - Platelet count decreased [Not Recovered/Not Resolved]
  - Hair colour changes [Recovered/Resolved]
  - Vomiting [Unknown]
  - Thyroid hormones increased [Recovered/Resolved]
  - Hypoaesthesia [Recovered/Resolved]

NARRATIVE: CASE EVENT DATE: 2014
